FAERS Safety Report 5922416-4 (Version None)
Quarter: 2008Q4

REPORT INFORMATION
  Report Type: 
  Country: None (occurrence: None)
  Receive Date: 20081010
  Receipt Date: 20081001
  Transmission Date: 20090506
  Serious: Yes (Other)
  Sender: FDA-Public Use
  Company Number: CART-1000016

PATIENT
  Age: 19 Year
  Sex: Female
  Weight: 57.6 kg

DRUGS (1)
  1. CARTICEL [Suspect]
     Indication: CHONDROPATHY
     Dosage: INTRA-ARTICULAR
     Route: 014
     Dates: start: 20040512, end: 20040512

REACTIONS (1)
  - GRANULOMA [None]
